FAERS Safety Report 6762503-4 (Version None)
Quarter: 2010Q2

REPORT INFORMATION
  Report Type: 
  Country: None (occurrence: None)
  Receive Date: 20100609
  Receipt Date: 20100527
  Transmission Date: 20101027
  Serious: Yes (Hospitalization, Other)
  Sender: FDA-Public Use
  Company Number: DK-WATSON-2010-07291

PATIENT
  Age: 18 Year
  Sex: Female

DRUGS (1)
  1. FUROSEMIDE (WATSON LABORATORIES) [Suspect]
     Indication: PULMONARY HYPERTENSION
     Dosage: UNK

REACTIONS (2)
  - BLISTER [None]
  - HYPERTHERMIA [None]
